FAERS Safety Report 5207656-4 (Version None)
Quarter: 2007Q1

REPORT INFORMATION
  Report Type: 
  Country: None (occurrence: None)
  Receive Date: 20070112
  Receipt Date: 20070102
  Transmission Date: 20070707
  Serious: Yes (Life-Threatening, Hospitalization)
  Sender: FDA-Public Use
  Company Number: DE-PFIZER INC-2006147869

PATIENT
  Sex: Male
  Weight: 72 kg

DRUGS (2)
  1. NEURONTIN [Suspect]
     Indication: DIABETIC NEUROPATHY
     Dosage: DAILY DOSE:900MG
     Route: 048
     Dates: start: 20061001, end: 20061119
  2. NEURONTIN [Suspect]
     Indication: EPILEPSY

REACTIONS (6)
  - CONVULSION [None]
  - MYOCLONUS [None]
  - OVERDOSE [None]
  - RESPIRATORY DISORDER [None]
  - SOMNOLENCE [None]
  - UNRESPONSIVE TO STIMULI [None]
